FAERS Safety Report 9358915 (Version 1)
Quarter: 2013Q2

REPORT INFORMATION
  Report Type: Spontaneous
  Country: US (occurrence: US)
  Receive Date: 20130620
  Receipt Date: 20130620
  Transmission Date: 20140414
  Serious: Yes (Death, Hospitalization, Other)
  Sender: FDA-Public Use
  Company Number: PHHY2013US062791

PATIENT
  Age: 29 Year
  Sex: Male

DRUGS (5)
  1. SUMATRIPTAN [Suspect]
     Indication: MIGRAINE
     Dosage: 100 MG
     Dates: start: 200906, end: 201002
  2. ADDERALL [Suspect]
     Dosage: 30MG IN THE MORNING AND 25MG IN THE EVENING
  3. METHYLPHENIDATE [Concomitant]
     Dosage: 18 MG/DAY
     Dates: start: 2000
  4. METHYLPHENIDATE [Concomitant]
     Dosage: 36 MG/DAY
  5. ATOMOXETINE [Concomitant]

REACTIONS (8)
  - Hyperplasia [Fatal]
  - Coronary artery disease [Fatal]
  - Cardiac arrest [Unknown]
  - Circulatory collapse [Unknown]
  - Sinus tachycardia [Unknown]
  - Syncope [Recovered/Resolved]
  - Myalgia [Unknown]
  - Pulseless electrical activity [Unknown]
